FAERS Safety Report 4482619-5 (Version None)
Quarter: 2004Q4

REPORT INFORMATION
  Report Type: 
  Country: None (occurrence: None)
  Receive Date: 20041022
  Receipt Date: 20041014
  Transmission Date: 20050328
  Serious: Yes (Hospitalization)
  Sender: FDA-Public Use
  Company Number: FR-JNJFOC-20041004301

PATIENT
  Age: 56 Year
  Sex: Male

DRUGS (3)
  1. TOPALGIC [Suspect]
     Route: 049
  2. IMOVANE [Suspect]
     Route: 049
  3. LEXOMIL [Suspect]
     Route: 049

REACTIONS (4)
  - ASTHENIA [None]
  - BALANCE DISORDER [None]
  - DRUG INTERACTION [None]
  - MENTAL STATUS CHANGES [None]
